FAERS Safety Report 16738141 (Version 1)
Quarter: 2019Q3

REPORT INFORMATION
  Report Type: Spontaneous
  Country: US (occurrence: US)
  Receive Date: 20190824
  Receipt Date: 20190824
  Transmission Date: 20191005
  Serious: Yes (Death, Other)
  Sender: FDA-Public Use
  Company Number: US-BRISTOL-MYERS SQUIBB COMPANY-BMS-2019-083055

PATIENT
  Age: 62 Year
  Sex: Female

DRUGS (4)
  1. BISOPROLOL [Concomitant]
     Active Substance: BISOPROLOL
     Indication: PRODUCT USED FOR UNKNOWN INDICATION
     Route: 065
  2. ATORVASTATIN [Concomitant]
     Active Substance: ATORVASTATIN
     Indication: PRODUCT USED FOR UNKNOWN INDICATION
     Route: 065
  3. OPDIVO [Suspect]
     Active Substance: NIVOLUMAB
     Indication: OVARIAN CANCER
     Dosage: 242.1 MILLIGRAM, Q3WK
     Route: 065
     Dates: start: 201811
  4. YERVOY [Suspect]
     Active Substance: IPILIMUMAB
     Indication: OVARIAN CANCER
     Dosage: 80.7 MILLIGRAM, Q3WK
     Route: 065
     Dates: start: 201811

REACTIONS (2)
  - Intentional product use issue [Unknown]
  - Death [Fatal]

NARRATIVE: CASE EVENT DATE: 20181219
